FAERS Safety Report 9856229 (Version 1)
Quarter: 2014Q1

REPORT INFORMATION
  Report Type: Spontaneous
  Country: CL (occurrence: CL)
  Receive Date: 20140130
  Receipt Date: 20140130
  Transmission Date: 20141002
  Serious: Yes (Other)
  Sender: FDA-Public Use
  Company Number: CL-PFIZER INC-2014028355

PATIENT
  Age: 92 Year
  Sex: Female

DRUGS (5)
  1. LYRICA [Suspect]
     Indication: NEURALGIA
     Dosage: 75 MG, 2X/DAY
     Route: 048
     Dates: start: 2009
  2. LYRICA [Suspect]
     Indication: HERPES ZOSTER
  3. EUTIROX [Concomitant]
     Dosage: AT NIGHT
     Dates: start: 2011
  4. NEXIUM [Concomitant]
     Dosage: UNK
     Dates: start: 2008
  5. AMANTADINE [Concomitant]
     Dosage: UNK
     Dates: start: 2011

REACTIONS (4)
  - Hypothyroidism [Not Recovered/Not Resolved]
  - Herpes virus infection [Not Recovered/Not Resolved]
  - Neuralgia [Not Recovered/Not Resolved]
  - Neuralgia [Unknown]
